FAERS Safety Report 5186165-5 (Version None)
Quarter: 2006Q4

REPORT INFORMATION
  Report Type: 
  Country: None (occurrence: None)
  Receive Date: 20061220
  Receipt Date: 20061031
  Transmission Date: 20070319
  Serious: No
  Sender: FDA-Public Use
  Company Number: US-GLAXOSMITHKLINE-A0625568A

PATIENT
  Age: 54 Year
  Sex: Female

DRUGS (1)
  1. MEMBERS MARK NTS ORIGINAL, 21MG [Suspect]
     Dates: start: 20061024, end: 20061030

REACTIONS (9)
  - CHEILITIS [None]
  - DYSGEUSIA [None]
  - EATING DISORDER [None]
  - FLATULENCE [None]
  - MOUTH ULCERATION [None]
  - OEDEMA MOUTH [None]
  - SWOLLEN TONGUE [None]
  - TONGUE ULCERATION [None]
  - WEIGHT DECREASED [None]
